FAERS Safety Report 12679084 (Version 2)
Quarter: 2016Q3

REPORT INFORMATION
  Report Type: Spontaneous
  Country: US (occurrence: US)
  Receive Date: 20160824
  Receipt Date: 20160825
  Transmission Date: 20161109
  Serious: Yes (Death, Other)
  Sender: FDA-Public Use
  Company Number: US-SHIRE-US201610806

PATIENT
  Age: 77 Year
  Sex: Female

DRUGS (1)
  1. FOSRENOL [Suspect]
     Active Substance: LANTHANUM CARBONATE
     Indication: RENAL FAILURE
     Dosage: UNK, 3X/DAY:TID (CHEW AFTER MEALS)
     Route: 048

REACTIONS (6)
  - Cardiac disorder [Fatal]
  - Blood cholesterol abnormal [Unknown]
  - Pain [Unknown]
  - Atrial fibrillation [Fatal]
  - Dyspnoea [Fatal]
  - Fall [Fatal]

NARRATIVE: CASE EVENT DATE: 2011
